FAERS Safety Report 15009518 (Version 2)
Quarter: 2018Q3

REPORT INFORMATION
  Report Type: Spontaneous
  Country: US (occurrence: US)
  Receive Date: 20180614
  Receipt Date: 20180706
  Transmission Date: 20181010
  Serious: No
  Sender: FDA-Public Use
  Company Number: US-AMGEN-USASP2018077616

PATIENT
  Age: 37 Year
  Sex: Female

DRUGS (8)
  1. ENBREL [Suspect]
     Active Substance: ETANERCEPT
     Indication: POLYARTHRITIS
     Dosage: 50 MG, QWK
     Route: 058
     Dates: start: 20180130
  2. ENBREL [Suspect]
     Active Substance: ETANERCEPT
     Indication: PSORIATIC ARTHROPATHY
  3. ESCITALOPRAM [Concomitant]
     Active Substance: ESCITALOPRAM OXALATE
     Dosage: 20 MG, UNK
  4. AMBIEN [Concomitant]
     Active Substance: ZOLPIDEM TARTRATE
     Dosage: 10 MG, UNK
  5. MELOXICAM. [Concomitant]
     Active Substance: MELOXICAM
     Dosage: 15 MG, UNK
  6. ENBREL [Suspect]
     Active Substance: ETANERCEPT
     Indication: RHEUMATOID ARTHRITIS
     Dosage: 50 MG, QWK
     Route: 058
  7. LATUDA [Concomitant]
     Active Substance: LURASIDONE HYDROCHLORIDE
     Dosage: 80 MG, UNK
  8. ARMOUR THYROID [Concomitant]
     Active Substance: THYROID, PORCINE
     Dosage: 120 MG, UNK

REACTIONS (3)
  - Pyrexia [Not Recovered/Not Resolved]
  - Hyperglycaemia [Not Recovered/Not Resolved]
  - Renal disorder [Not Recovered/Not Resolved]

NARRATIVE: CASE EVENT DATE: 2018
